FAERS Safety Report 9092821 (Version 1)
Quarter: 2013Q1

REPORT INFORMATION
  Report Type: Report from Study
  Country: US (occurrence: US)
  Receive Date: 20130131
  Receipt Date: 20130131
  Transmission Date: 20140127
  Serious: No
  Sender: FDA-Public Use
  Company Number: US-ABBOTT-12P-163-0973734-00

PATIENT
  Age: 36 Year
  Sex: Female

DRUGS (20)
  1. HUMIRA [Suspect]
     Indication: COLITIS ULCERATIVE
     Route: 058
     Dates: start: 20120719, end: 20120927
  2. PENTAZOLE [Concomitant]
     Indication: GASTROINTESTINAL DISORDER
  3. NEXIUM [Concomitant]
     Indication: GASTROINTESTINAL DISORDER
  4. ALLEGRA [Concomitant]
     Indication: HYPERSENSITIVITY
  5. WELLBUTRIN [Concomitant]
     Indication: ANXIETY
  6. TRIMETHOPRIM [Concomitant]
     Indication: CYST
  7. ELMIRON [Concomitant]
     Indication: CYST
  8. UNKNOWN NASAL SPRAY [Concomitant]
     Indication: PRODUCT USED FOR UNKNOWN INDICATION
  9. FLOVENT [Concomitant]
     Indication: ASTHMA
  10. SKELAXIN [Concomitant]
     Indication: PAIN
  11. TRAMADOL [Concomitant]
     Indication: PAIN
  12. FLEXERIL [Concomitant]
     Indication: MUSCLE SPASMS
  13. OXYCODONE [Concomitant]
     Indication: PAIN
     Dosage: 10/325 EVERY 4-6 HOURS AS NEEDED
  14. ZOFRAN [Concomitant]
     Indication: NAUSEA
     Dosage: EVERY 8 HOURS AS NEEDED
  15. ZOFRAN [Concomitant]
     Indication: VOMITING
  16. ZANAFLEX [Concomitant]
     Indication: MUSCLE SPASMS
  17. PYRIDIUM [Concomitant]
     Indication: URINARY TRACT PAIN
  18. ASACOL [Concomitant]
     Indication: PRODUCT USED FOR UNKNOWN INDICATION
     Dosage: 2 TABLETS TID
  19. ALLERGY SHOTS [Concomitant]
     Indication: PRODUCT USED FOR UNKNOWN INDICATION
  20. DEPO-PROVERA [Concomitant]
     Indication: PRODUCT USED FOR UNKNOWN INDICATION

REACTIONS (11)
  - Pyrexia [Not Recovered/Not Resolved]
  - Colitis ulcerative [Unknown]
  - Myalgia [Not Recovered/Not Resolved]
  - Malaise [Not Recovered/Not Resolved]
  - Dizziness [Not Recovered/Not Resolved]
  - Vision blurred [Not Recovered/Not Resolved]
  - Hypoaesthesia [Not Recovered/Not Resolved]
  - Paraesthesia [Not Recovered/Not Resolved]
  - Sensory loss [Not Recovered/Not Resolved]
  - Fatigue [Not Recovered/Not Resolved]
  - Muscle spasms [Not Recovered/Not Resolved]
